FAERS Safety Report 14314586 (Version 1)
Quarter: 2017Q4

REPORT INFORMATION
  Report Type: Spontaneous
  Country: GB (occurrence: GB)
  Receive Date: 20171221
  Receipt Date: 20171221
  Transmission Date: 20180321
  Serious: Yes (Hospitalization)
  Sender: FDA-Public Use
  Company Number: GB-TEVA-2017-GB-834730

PATIENT
  Age: 91 Year
  Sex: Male
  Weight: 69 kg

DRUGS (11)
  1. PARACETAMOL [Concomitant]
     Active Substance: ACETAMINOPHEN
     Route: 065
  2. COLECALCIFEROL [Concomitant]
     Active Substance: CHOLECALCIFEROL
  3. SODIUM VALPROATE [Concomitant]
     Active Substance: VALPROATE SODIUM
  4. RAMIPRIL. [Suspect]
     Active Substance: RAMIPRIL
     Dosage: MORNING
     Route: 048
     Dates: end: 20171020
  5. BENDROFLUMETHIAZIDE [Suspect]
     Active Substance: BENDROFLUMETHIAZIDE
     Indication: HYPERTENSION
     Dosage: MORNING
     Route: 048
     Dates: end: 20171020
  6. ACETYLSALICYLIC ACID [Concomitant]
     Active Substance: ASPIRIN
  7. MACROGOL [Concomitant]
     Active Substance: POLYETHYLENE GLYCOLS
  8. OMEPRAZOLE SODIUM [Concomitant]
     Active Substance: OMEPRAZOLE SODIUM
  9. MOXONIDINE [Suspect]
     Active Substance: MOXONIDINE
     Indication: HYPERTENSION
     Dosage: MORNING
     Route: 048
     Dates: end: 20171020
  10. RAMIPRIL. [Suspect]
     Active Substance: RAMIPRIL
     Indication: HYPERTENSION
     Dosage: MORNING
     Route: 048
     Dates: end: 20171023
  11. CETRABEN EMOLLIENT CREAM [Concomitant]

REACTIONS (2)
  - Unresponsive to stimuli [Recovered/Resolved]
  - Circulatory collapse [Recovered/Resolved]

NARRATIVE: CASE EVENT DATE: 20171020
